FAERS Safety Report 5354937-X (Version None)
Quarter: 2007Q2

REPORT INFORMATION
  Report Type: 
  Country: None (occurrence: None)
  Receive Date: 20070521
  Receipt Date: 20070322
  Transmission Date: 20071010
  Serious: No
  Sender: FDA-Public Use
  Company Number: WAES 0703USA04369

PATIENT
  Age: 68 Year
  Sex: Female

DRUGS (1)
  1. JANUVIA [Suspect]
     Indication: DIABETES MELLITUS
     Dosage: PO
     Route: 048
     Dates: start: 20070301

REACTIONS (3)
  - PHARYNGOLARYNGEAL PAIN [None]
  - RHINORRHOEA [None]
  - WRONG TECHNIQUE IN DRUG USAGE PROCESS [None]
